FAERS Safety Report 4364327-4 (Version None)
Quarter: 2004Q2

REPORT INFORMATION
  Report Type: 
  Country: None (occurrence: None)
  Receive Date: 20040525
  Receipt Date: 20030909
  Transmission Date: 20050107
  Serious: No
  Sender: FDA-Public Use
  Company Number: US-BRISTOL-MYERS SQUIBB COMPANY-12378055

PATIENT
  Age: 51 Year
  Sex: Female
  Weight: 89 kg

DRUGS (5)
  1. CYTOXAN [Suspect]
     Indication: BREAST CANCER
     Route: 042
     Dates: start: 20030620, end: 20030620
  2. DOXORUBICIN HCL [Concomitant]
     Indication: BREAST CANCER
     Dosage: ^GIVEN 1ST THEN FOLLOWED WITH THE CYTOXAN^
  3. ANZEMET [Concomitant]
     Indication: PREMEDICATION
     Dosage: PRE-MEDICATION; POST-MEDICATION DOSAGE NOT PROVIDED
     Route: 042
  4. DECADRON [Concomitant]
     Indication: PREMEDICATION
     Dosage: PRE-MEDICATION
  5. COMPAZINE [Concomitant]
     Dosage: POST-MEDICATION

REACTIONS (2)
  - DIZZINESS [None]
  - HYPOKALAEMIA [None]
